FAERS Safety Report 6896629-1 (Version None)
Quarter: 2010Q3

REPORT INFORMATION
  Report Type: 
  Country: None (occurrence: None)
  Receive Date: 20100802
  Receipt Date: 20070105
  Transmission Date: 20110219
  Serious: No
  Sender: FDA-Public Use
  Company Number: US-PFIZER INC-2007002945

PATIENT
  Sex: Female
  Weight: 64.41 kg

DRUGS (3)
  1. LYRICA [Suspect]
     Indication: NERVE INJURY
     Dates: start: 20061101
  2. DEPO-MEDROL [Suspect]
     Indication: PRURITUS
     Dates: start: 20061127
  3. ACETYLSALICYLIC ACID SRT [Concomitant]

REACTIONS (3)
  - MIDDLE INSOMNIA [None]
  - PRURITUS [None]
  - RASH [None]
